FAERS Safety Report 9123149 (Version 1)
Quarter: 2013Q1

REPORT INFORMATION
  Report Type: Spontaneous
  Country: AU (occurrence: None)
  Receive Date: 20130128
  Receipt Date: 20130128
  Transmission Date: 20140127
  Serious: Yes (Hospitalization)
  Sender: FDA-Public Use
  Company Number: 2012-16911

PATIENT
  Age: 54 Year
  Sex: Female

DRUGS (1)
  1. TRAMADOL HYDROCHLORIDE [Suspect]
     Indication: PRODUCT USED FOR UNKNOWN INDICATION
     Dosage: 3000 MG,  SINGLE (20 OF 150 MG SR TABS),  ORAL
     Route: 048

REACTIONS (5)
  - Hypoglycaemia [None]
  - Toxicity to various agents [None]
  - Suicidal ideation [None]
  - Convulsion [None]
  - Depressed level of consciousness [None]
